FAERS Safety Report 17990540 (Version 5)
Quarter: 2021Q4

REPORT INFORMATION
  Report Type: Spontaneous
  Country: US (occurrence: US)
  Receive Date: 20200707
  Receipt Date: 20211202
  Transmission Date: 20220304
  Serious: Yes (Hospitalization, Other)
  Sender: FDA-Public Use
  Company Number: US-PFIZER INC-2020260053

PATIENT
  Age: 57 Year
  Sex: Male

DRUGS (1)
  1. LYRICA [Suspect]
     Active Substance: PREGABALIN
     Indication: Peripheral nerve injury
     Dosage: 300 MG

REACTIONS (5)
  - Pneumonia [Unknown]
  - COVID-19 [Unknown]
  - Pyrexia [Unknown]
  - Limb discomfort [Not Recovered/Not Resolved]
  - Memory impairment [Unknown]
